FAERS Safety Report 23874550 (Version 1)
Quarter: 2024Q2

REPORT INFORMATION
  Report Type: Spontaneous
  Country: SE (occurrence: SE)
  Receive Date: 20240520
  Receipt Date: 20240520
  Transmission Date: 20240716
  Serious: Yes (Disabling)
  Sender: FDA-Public Use
  Company Number: None

PATIENT
  Age: 18 Year
  Sex: Female
  Weight: 76 kg

DRUGS (2)
  1. FIASP [Suspect]
     Active Substance: INSULIN ASPART
     Indication: Product used for unknown indication
     Dosage: UNK (LATER DOSE)
     Route: 058
     Dates: start: 20220105, end: 20220209
  2. NOVORAPID [Suspect]
     Active Substance: INSULIN ASPART
     Indication: Type 1 diabetes mellitus
     Dosage: 90E/DAY: LATER DOSE
     Route: 058
     Dates: start: 20220209

REACTIONS (2)
  - Impaired quality of life [Recovered/Resolved with Sequelae]
  - Lipodystrophy acquired [Recovered/Resolved with Sequelae]

NARRATIVE: CASE EVENT DATE: 20240101
